FAERS Safety Report 7099135-7 (Version None)
Quarter: 2010Q4

REPORT INFORMATION
  Report Type: 
  Country: None (occurrence: None)
  Receive Date: 20101112
  Receipt Date: 20101104
  Transmission Date: 20110411
  Serious: Yes (Hospitalization)
  Sender: FDA-Public Use
  Company Number: B0683924A

PATIENT
  Age: 47 Year
  Sex: Male

DRUGS (1)
  1. AUGMENTIN XR [Suspect]
     Indication: TOOTHACHE
     Route: 048
     Dates: start: 20101011, end: 20101001

REACTIONS (3)
  - BRONCHOSPASM [None]
  - DYSPNOEA [None]
  - RASH ERYTHEMATOUS [None]
